FAERS Safety Report 18419966 (Version 3)
Quarter: 2020Q4

REPORT INFORMATION
  Report Type: Spontaneous
  Country: ES (occurrence: ES)
  Receive Date: 20201023
  Receipt Date: 20201201
  Transmission Date: 20210114
  Serious: Yes (Other)
  Sender: FDA-Public Use
  Company Number: ES-009507513-2010ESP007709

PATIENT
  Age: 62 Year
  Sex: Male

DRUGS (2)
  1. KEYTRUDA [Suspect]
     Active Substance: PEMBROLIZUMAB
     Indication: LUNG ADENOCARCINOMA
     Dosage: UNK UNK, Q3W
     Dates: start: 20190911, end: 20200916
  2. CARBOPLATIN. [Suspect]
     Active Substance: CARBOPLATIN
     Indication: LUNG ADENOCARCINOMA
     Dosage: UNK
     Dates: start: 2019

REACTIONS (16)
  - Pneumonia [Unknown]
  - Spondylolisthesis [Unknown]
  - Spinal osteoarthritis [Unknown]
  - Neurotoxicity [Recovering/Resolving]
  - Hepatic cyst [Unknown]
  - Emphysema [Unknown]
  - Renal cyst [Unknown]
  - Cystic lung disease [Unknown]
  - Intervertebral disc degeneration [Unknown]
  - Pleural effusion [Unknown]
  - Vertebral foraminal stenosis [Unknown]
  - Hernia [Unknown]
  - Femur fracture [Unknown]
  - Bronchiectasis [Unknown]
  - Neuritis [Recovering/Resolving]
  - Nodule [Unknown]

NARRATIVE: CASE EVENT DATE: 2020
